FAERS Safety Report 6941401-7 (Version None)
Quarter: 2010Q3

REPORT INFORMATION
  Report Type: 
  Country: None (occurrence: None)
  Receive Date: 20100824
  Receipt Date: 20100824
  Transmission Date: 20110219
  Serious: Yes (Other)
  Sender: FDA-Public Use
  Company Number: None

PATIENT
  Sex: Female
  Weight: 86.4 kg

DRUGS (1)
  1. SEASONIQUE [Suspect]
     Dosage: TABLET DAILY ORAL
     Route: 048
     Dates: start: 20080701, end: 20100101

REACTIONS (6)
  - ABORTION SPONTANEOUS [None]
  - CHOLELITHIASIS [None]
  - DRUG EXPOSURE BEFORE PREGNANCY [None]
  - HYPOMENORRHOEA [None]
  - INFERTILITY FEMALE [None]
  - UTERINE LEIOMYOMA [None]
